FAERS Safety Report 17590165 (Version 1)
Quarter: 2020Q1

REPORT INFORMATION
  Report Type: Spontaneous
  Country: GB (occurrence: GB)
  Receive Date: 20200327
  Receipt Date: 20200327
  Transmission Date: 20200409
  Serious: Yes (Other)
  Sender: FDA-Public Use
  Company Number: GB-JNJFOC-20200323655

PATIENT
  Age: 25 Year
  Sex: Female
  Weight: 50.8 kg

DRUGS (1)
  1. SUDAFED [Suspect]
     Active Substance: PSEUDOEPHEDRINE HYDROCHLORIDE
     Indication: SINUS CONGESTION
     Dosage: ONE 17/1/20 EVENING. ONE 18/1/20 MORNING
     Route: 048
     Dates: start: 20200117, end: 20200118

REACTIONS (2)
  - Rash erythematous [Recovered/Resolved]
  - Mouth ulceration [Recovered/Resolved]

NARRATIVE: CASE EVENT DATE: 20200118
